FAERS Safety Report 20207886 (Version 1)
Quarter: 2021Q4

REPORT INFORMATION
  Report Type: Spontaneous
  Country: US (occurrence: None)
  Receive Date: 20211220
  Receipt Date: 20211220
  Transmission Date: 20220303
  Serious: No
  Sender: FDA-Public Use
  Company Number: None

PATIENT
  Age: 40 Year
  Sex: Female

DRUGS (1)
  1. AMPHETAMINE\DEXTROAMPHETAMINE [Suspect]
     Active Substance: AMPHETAMINE\DEXTROAMPHETAMINE
     Indication: Attention deficit hyperactivity disorder
     Dosage: OTHER QUANTITY : 1 TABLET(S);?
     Route: 048
     Dates: start: 20211213

REACTIONS (9)
  - Product substitution issue [None]
  - Adverse drug reaction [None]
  - Headache [None]
  - Nausea [None]
  - Drug ineffective [None]
  - Attention deficit hyperactivity disorder [None]
  - Condition aggravated [None]
  - Paradoxical drug reaction [None]
  - Product quality issue [None]

NARRATIVE: CASE EVENT DATE: 20211213
